FAERS Safety Report 8398799-5 (Version None)
Quarter: 2012Q2

REPORT INFORMATION
  Report Type: 
  Country: None (occurrence: None)
  Receive Date: 20120524
  Receipt Date: 20120515
  Transmission Date: 20120825
  Serious: Yes (Other)
  Sender: FDA-Public Use
  Company Number: 2012SP004505

PATIENT
  Age: 69 Year
  Sex: Male
  Weight: 68.8 kg

DRUGS (10)
  1. REMERON [Suspect]
     Indication: DEPRESSION
     Dosage: 30 MG; QD; PO
     Route: 048
     Dates: start: 20110202, end: 20110805
  2. ADALAT CC [Concomitant]
  3. ROHYPNOL [Concomitant]
  4. NITRAZEPAM [Concomitant]
  5. NESPO [Concomitant]
  6. SEROQUEL [Concomitant]
  7. YODEL-S (SENNA EXTRACT) [Concomitant]
  8. VEGETAMIN-A (CHLORPROMAZINE/PROMETHAZINE COMBINED DRUG) [Concomitant]
  9. ZYPREXA [Concomitant]
  10. PERSANTINE [Concomitant]

REACTIONS (3)
  - RENAL FAILURE CHRONIC [None]
  - NEPHROGENIC ANAEMIA [None]
  - CONDITION AGGRAVATED [None]
